FAERS Safety Report 20844057 (Version 1)
Quarter: 2022Q2

REPORT INFORMATION
  Report Type: Report from Study
  Country: US (occurrence: None)
  Receive Date: 20220518
  Receipt Date: 20220518
  Transmission Date: 20220721
  Serious: Yes (Hospitalization)
  Sender: FDA-Public Use
  Company Number: US-ROCHE-3093794

PATIENT
  Sex: Female
  Weight: 71.2 kg

DRUGS (21)
  1. PALBOCICLIB [Suspect]
     Active Substance: PALBOCICLIB
     Indication: Breast cancer metastatic
     Dosage: DOSE I: 100 MG ORALLY DAILY, DAY 1 TO DAY 21, THEN 7 DAYS OFF IN A 28 DAY CYCLE (PHASE 1 ONLY) DOSE
     Route: 065
  2. TRASTUZUMAB [Suspect]
     Active Substance: TRASTUZUMAB
     Indication: Breast cancer metastatic
     Dosage: 8 MG/KG IV INITIAL LOADING DOSE, FOLLOWED BY 6 MG/KG IV EVERY 21 DAYS
     Route: 041
  3. PERTUZUMAB [Suspect]
     Active Substance: PERTUZUMAB
     Indication: Breast cancer metastatic
     Dosage: 840 MG IV FOLLOWED BY A MAINTENANCE DOSE OF 420 MG IV EVERY 21 DAYS
     Route: 065
  4. ANASTROZOLE [Suspect]
     Active Substance: ANASTROZOLE
     Indication: Breast cancer metastatic
     Dosage: 1 MG ORALLY DAILY, DAY 1 TO DAY 28
     Route: 065
  5. ACETAMINOPHEN [Concomitant]
     Active Substance: ACETAMINOPHEN
  6. APIXABAN [Concomitant]
     Active Substance: APIXABAN
  7. ATORVASTATIN [Concomitant]
     Active Substance: ATORVASTATIN
  8. VITAMIN D3 [Concomitant]
     Active Substance: CHOLECALCIFEROL
  9. DULAGLUTIDE [Concomitant]
     Active Substance: DULAGLUTIDE
  10. FAMOTIDINE [Concomitant]
     Active Substance: FAMOTIDINE
  11. FOLIC ACID [Concomitant]
     Active Substance: FOLIC ACID
  12. DEXTROSE [Concomitant]
     Active Substance: DEXTROSE
  13. HYDROXYCHLOROQUINE [Concomitant]
     Active Substance: HYDROXYCHLOROQUINE
  14. HYDROCORTISONE [Concomitant]
     Active Substance: HYDROCORTISONE
  15. INSULIN LISPRO [Concomitant]
     Active Substance: INSULIN LISPRO
  16. LAMOTRIGINE [Concomitant]
     Active Substance: LAMOTRIGINE
  17. LIDOCAINE [Concomitant]
     Active Substance: LIDOCAINE
  18. LOSARTAN [Concomitant]
     Active Substance: LOSARTAN
  19. NYSTATIN [Concomitant]
     Active Substance: NYSTATIN
  20. OXYCODONE [Concomitant]
     Active Substance: OXYCODONE
  21. PANTOPRAZOLE [Concomitant]
     Active Substance: PANTOPRAZOLE

REACTIONS (2)
  - Blood creatinine increased [Unknown]
  - Hyperglycaemia [Unknown]

NARRATIVE: CASE EVENT DATE: 20220419
